FAERS Safety Report 8248740-0 (Version None)
Quarter: 2012Q1

REPORT INFORMATION
  Report Type: 
  Country: None (occurrence: None)
  Receive Date: 20120331
  Receipt Date: 20120326
  Transmission Date: 20120608
  Serious: Yes (Death, Hospitalization)
  Sender: FDA-Public Use
  Company Number: PHHY2012CH026452

PATIENT
  Age: 67 Year
  Sex: Female

DRUGS (5)
  1. RASILEZ [Suspect]
     Indication: HYPERTENSION
     Dosage: 150 MG/DAILY
     Dates: start: 20100301, end: 20110410
  2. TRANDATE [Concomitant]
     Indication: HYPERTENSION
     Dosage: 200 MG, 4 TIMES DAILY
     Dates: end: 20110410
  3. GLUCOPHAGE [Concomitant]
     Indication: TYPE 2 DIABETES MELLITUS
  4. ENALAPRIL MALEATE [Concomitant]
     Indication: HYPERTENSION
     Dosage: 20 MG/DAILY
     Dates: end: 20110410
  5. TORSEMIDE [Concomitant]
     Indication: HYPERTENSION
     Dates: end: 20110410

REACTIONS (11)
  - RIB DEFORMITY [None]
  - CARDIO-RESPIRATORY ARREST [None]
  - RENAL FAILURE [None]
  - HYPERTENSION [None]
  - AGITATION [None]
  - CONFUSIONAL STATE [None]
  - FALL [None]
  - HAEMOGLOBIN ABNORMAL [None]
  - LUNG DISORDER [None]
  - DEHYDRATION [None]
  - CARDIAC HYPERTROPHY [None]
